FAERS Safety Report 7058623-X (Version None)
Quarter: 2010Q4

REPORT INFORMATION
  Report Type: 
  Country: None (occurrence: None)
  Receive Date: 20101022
  Receipt Date: 20101012
  Transmission Date: 20110411
  Serious: Yes (Hospitalization)
  Sender: FDA-Public Use
  Company Number: B0678895A

PATIENT
  Sex: Female

DRUGS (8)
  1. LAMICTAL [Suspect]
     Indication: EPILEPSY
     Route: 048
     Dates: start: 19960101, end: 19990101
  2. NEURONTIN [Suspect]
     Indication: EPILEPSY
     Dosage: 800MG TWICE PER DAY
     Route: 048
     Dates: start: 19960101
  3. TOPIRAMATE [Suspect]
     Indication: OPTIC NEUROPATHY
     Dosage: 200MG TWICE PER DAY
     Route: 048
     Dates: start: 20000101
  4. URBANYL [Suspect]
     Route: 048
     Dates: start: 20000101, end: 20090101
  5. TEGRETOL [Suspect]
     Route: 048
     Dates: start: 19960101, end: 20000101
  6. TEGELINE [Suspect]
     Route: 042
     Dates: start: 20030101
  7. RIVOTRIL [Suspect]
     Dosage: 4DROP PER DAY
     Route: 048
     Dates: start: 20090901, end: 20091101
  8. VIMPAT [Suspect]
     Indication: OPTIC NEUROPATHY
     Route: 048
     Dates: start: 20091101

REACTIONS (2)
  - OPTIC NEUROPATHY [None]
  - VISION BLURRED [None]
